FAERS Safety Report 12186159 (Version 2)
Quarter: 2016Q1

REPORT INFORMATION
  Report Type: Report from Study
  Country: NO (occurrence: NO)
  Receive Date: 20160317
  Receipt Date: 20160329
  Transmission Date: 20160526
  Serious: Yes (Other)
  Sender: FDA-Public Use
  Company Number: NO-ROCHE-1727069

PATIENT

DRUGS (2)
  1. ALTEPLASE [Suspect]
     Active Substance: ALTEPLASE
     Indication: DEEP VEIN THROMBOSIS
     Dosage: DAILY DOSAGE: 20 MG IN 500 ML 0.9% SALINE ADMINISTERED THROUGH THE CATHETER AT AN INFUSION RATE OF 0
     Route: 042
  2. HEPARIN [Concomitant]
     Active Substance: HEPARIN SODIUM
     Indication: PRODUCT USED FOR UNKNOWN INDICATION
     Dosage: 15 U/KG PER HOUR; FORMULATION: CONTINUOUS INFUSION
     Route: 042

REACTIONS (1)
  - Pulmonary hypertension [Unknown]
